FAERS Safety Report 5415708-9 (Version None)
Quarter: 2007Q3

REPORT INFORMATION
  Report Type: 
  Country: None (occurrence: None)
  Receive Date: 20070815
  Receipt Date: 20070803
  Transmission Date: 20080115
  Serious: Yes (Other)
  Sender: FDA-Public Use
  Company Number: FR-PFIZER INC-2006113889

PATIENT
  Age: 65 Year
  Sex: Female

DRUGS (7)
  1. LYRICA [Suspect]
     Indication: NEURALGIA
  2. SKENAN [Concomitant]
  3. ACTISKENAN [Concomitant]
  4. EFFEXOR [Concomitant]
  5. TRANXENE [Concomitant]
  6. TEGRETOL [Concomitant]
  7. NEURONTIN [Concomitant]

REACTIONS (8)
  - ACCOMMODATION DISORDER [None]
  - BALANCE DISORDER [None]
  - DIZZINESS [None]
  - FALL [None]
  - GAIT DISTURBANCE [None]
  - VERTIGO [None]
  - VISION BLURRED [None]
  - VISUAL FIELD DEFECT [None]
